FAERS Safety Report 9105552 (Version 2)
Quarter: 2013Q1

REPORT INFORMATION
  Report Type: Spontaneous
  Country: US (occurrence: US)
  Receive Date: 20130221
  Receipt Date: 20130222
  Transmission Date: 20140127
  Serious: No
  Sender: FDA-Public Use
  Company Number: US-TEVA-339686USA

PATIENT
  Sex: Female

DRUGS (1)
  1. TREANDA [Suspect]
     Route: 003

REACTIONS (2)
  - Skin discolouration [Recovered/Resolved]
  - Accidental exposure to product [Recovered/Resolved]
